FAERS Safety Report 7356270-3 (Version None)
Quarter: 2011Q1

REPORT INFORMATION
  Report Type: 
  Country: None (occurrence: None)
  Receive Date: 20110316
  Receipt Date: 20110314
  Transmission Date: 20110831
  Serious: Yes (Other)
  Sender: FDA-Public Use
  Company Number: AU-PFIZER INC-2011052492

PATIENT
  Sex: Male

DRUGS (2)
  1. EFFEXOR XR [Interacting]
     Dosage: UNK
  2. ZELDOX [Suspect]
     Dosage: 160 MG, 1X/DAY

REACTIONS (2)
  - DRUG INTERACTION [None]
  - ACTIVATION SYNDROME [None]
